FAERS Safety Report 6469274-X (Version None)
Quarter: 2009Q4

REPORT INFORMATION
  Report Type: 
  Country: None (occurrence: None)
  Receive Date: 20091203
  Receipt Date: 20090713
  Transmission Date: 20100525
  Serious: Yes (Other)
  Sender: FDA-Public Use
  Company Number: US-ELI_LILLY_AND_COMPANY-US200701002527

PATIENT
  Sex: Female

DRUGS (13)
  1. CYMBALTA [Suspect]
     Indication: FIBROMYALGIA
     Dosage: 30 MG, DAILY (1/D)
     Dates: start: 20080101
  2. CYMBALTA [Suspect]
     Dosage: 60 MG, DAILY (1/D)
     Dates: start: 20061201
  3. PROZAC [Interacting]
     Indication: DEPRESSION
     Dosage: 60 MG, UNK
     Dates: start: 19890101, end: 20080101
  4. PROZAC [Interacting]
     Dosage: 60 MG, DAILY (1/D)
     Route: 065
  5. SALSALATE [Concomitant]
     Indication: FIBROMYALGIA
     Dosage: 1500 MG, 2/D
  6. PREMARIN [Concomitant]
     Indication: HORMONE THERAPY
     Dosage: 1.25 MG, DAILY (1/D)
  7. ASPIRIN [Concomitant]
     Dosage: 81 MG, UNK
  8. XANAX [Concomitant]
     Dosage: 1 MG, 3/D
  9. NEXIUM                                  /UNK/ [Concomitant]
     Indication: ABDOMINAL DISCOMFORT
     Dosage: 40 MG, DAILY (1/D)
  10. PHENERGAN HCL [Concomitant]
     Indication: NAUSEA
     Dosage: UNK, AS NEEDED
  11. LORTAB [Concomitant]
     Indication: BACK PAIN
  12. LYRICA [Concomitant]
  13. WELLBUTRIN [Concomitant]
     Indication: DEPRESSION

REACTIONS (6)
  - ASTHENIA [None]
  - DRUG INEFFECTIVE [None]
  - DRUG INTERACTION [None]
  - RIB FRACTURE [None]
  - SPINAL FRACTURE [None]
  - SURGERY [None]
